FAERS Safety Report 11753866 (Version 1)
Quarter: 2015Q4

REPORT INFORMATION
  Report Type: Spontaneous
  Country: US (occurrence: CA)
  Receive Date: 20151119
  Receipt Date: 20151119
  Transmission Date: 20160304
  Serious: Yes (Other)
  Sender: FDA-Public Use
  Company Number: CA-FRI-1000080917

PATIENT
  Age: 37 Year
  Sex: Female

DRUGS (3)
  1. LITHIUM. [Suspect]
     Active Substance: LITHIUM
     Dosage: UNKNOWN
     Route: 065
  2. ASENAPINE [Suspect]
     Active Substance: ASENAPINE
     Dosage: 20 MG
     Route: 060
     Dates: start: 2014
  3. ZOLOFT [Suspect]
     Active Substance: SERTRALINE HYDROCHLORIDE
     Dosage: UNKNOWN
     Route: 065

REACTIONS (1)
  - Mastitis [Unknown]

NARRATIVE: CASE EVENT DATE: 2015
